FAERS Safety Report 5388440-8 (Version None)
Quarter: 2007Q3

REPORT INFORMATION
  Report Type: 
  Country: None (occurrence: None)
  Receive Date: 20070716
  Receipt Date: 20070704
  Transmission Date: 20080115
  Serious: Yes (Other)
  Sender: FDA-Public Use
  Company Number: JP-ROCHE-506272

PATIENT
  Age: 59 Year
  Sex: Male

DRUGS (6)
  1. CELLCEPT [Suspect]
     Route: 065
  2. BACTRIM [Suspect]
     Indication: NOCARDIOSIS
     Route: 065
  3. CYCLOSPORINE [Suspect]
     Indication: DRUG USE FOR UNKNOWN INDICATION
     Dosage: DRUG NAME REPORTED AS CICLOSPORIN-MEPC. INDICATION REPORTED AS 'IMMUNOTHERAPY'.
     Route: 065
  4. METHYLPREDNISOLONE [Suspect]
     Indication: DRUG USE FOR UNKNOWN INDICATION
     Dosage: INDICATION REPORTED AS 'IMMUNOTHERAPY'.
     Route: 065
  5. BASILIXIMAB [Suspect]
     Indication: DRUG USE FOR UNKNOWN INDICATION
     Dosage: INDICATION REPORTED AS 'IMMUNOTHERAPY'.
     Route: 065
  6. STEROID NOS [Suspect]
     Indication: DRUG USE FOR UNKNOWN INDICATION
     Dosage: DRUG NAME REPORTED AS STEROID PULSE THERAPY.
     Route: 065

REACTIONS (3)
  - KIDNEY TRANSPLANT REJECTION [None]
  - NOCARDIOSIS [None]
  - RENAL TUBULAR DISORDER [None]
